FAERS Safety Report 7935868 (Version 1)
Quarter: 2012Q4

REPORT INFORMATION
  Report Type: Report from Study
  Country: FR (occurrence: FR)
  Receive Date: 20120912
  Receipt Date: 20120912
  Transmission Date: 20130627
  Serious: Yes (Hospitalization)
  Sender: FDA-Public Use
  Company Number: PHHY2011FR36700

PATIENT
  Age: 13 None
  Sex: Male
  Weight: 31 kg

DRUGS (1)
  1. SOMATROPIN [Suspect]
     Indication: BLOOD GROWTH HORMONE
     Dosage: 15 mg/day (Strength: 6.7 mg/ml)
     Route: 058
     Dates: start: 20090315, end: 20091025

REACTIONS (2)
  - Fracture [Unknown]
  - Extradural haematoma [Unknown]
